FAERS Safety Report 9827669 (Version 1)
Quarter: 2014Q1

REPORT INFORMATION
  Report Type: Report from Study
  Country: CA (occurrence: CA)
  Receive Date: 20140117
  Receipt Date: 20140117
  Transmission Date: 20141002
  Serious: No
  Sender: FDA-Public Use
  Company Number: CA-009507513-1401CAN006959

PATIENT
  Sex: Female

DRUGS (3)
  1. SAPHRIS [Suspect]
     Dosage: UNK
     Route: 065
  2. GILENYA [Suspect]
     Dosage: 0.5 MG,  1 EVERY 1 DAY
     Route: 048
  3. GILENYA [Suspect]
     Dosage: 0.5 MG, 1 EVERY 1 DAY
     Route: 065

REACTIONS (6)
  - Multiple sclerosis relapse [Not Recovered/Not Resolved]
  - Palpitations [Not Recovered/Not Resolved]
  - Skin reaction [Not Recovered/Not Resolved]
  - Thyroiditis [Not Recovered/Not Resolved]
  - Urinary incontinence [Not Recovered/Not Resolved]
  - Rash [Not Recovered/Not Resolved]
